FAERS Safety Report 21250349 (Version 1)
Quarter: 2022Q3

REPORT INFORMATION
  Report Type: Spontaneous
  Country: US (occurrence: None)
  Receive Date: 20220823
  Receipt Date: 20220823
  Transmission Date: 20221026
  Serious: No
  Sender: FDA-Public Use
  Company Number: None

PATIENT
  Sex: Male

DRUGS (1)
  1. DIMETHYL FUMARATE [Suspect]
     Active Substance: DIMETHYL FUMARATE
     Dosage: 240MG BID ORAL?
     Route: 048

REACTIONS (5)
  - Speech disorder [None]
  - Fatigue [None]
  - Feeling abnormal [None]
  - Flushing [None]
  - Drug ineffective [None]
